FAERS Safety Report 18423451 (Version 2)
Quarter: 2020Q4

REPORT INFORMATION
  Report Type: Report from Study
  Country: BR (occurrence: BR)
  Receive Date: 20201023
  Receipt Date: 20201203
  Transmission Date: 20210114
  Serious: Yes (Other)
  Sender: FDA-Public Use
  Company Number: BR-JNJFOC-20201024692

PATIENT
  Age: 57 Year
  Sex: Female
  Weight: 84 kg

DRUGS (11)
  1. ALPRENOLOL [Concomitant]
     Active Substance: ALPRENOLOL
  2. ACETYLSALICYLIC ACID [Concomitant]
     Active Substance: ASPIRIN
     Route: 065
  3. STELARA [Suspect]
     Active Substance: USTEKINUMAB
     Indication: PSORIASIS
     Route: 058
     Dates: start: 20200217
  4. STELARA [Suspect]
     Active Substance: USTEKINUMAB
  5. VENLAFAXINA [VENLAFAXINE HYDROCHLORIDE] [Concomitant]
     Route: 065
  6. LOSARTAN. [Concomitant]
     Active Substance: LOSARTAN
  7. METFORMIN [Concomitant]
     Active Substance: METFORMIN HYDROCHLORIDE
  8. CLONAZEPAM. [Concomitant]
     Active Substance: CLONAZEPAM
  9. ATENOLOL. [Concomitant]
     Active Substance: ATENOLOL
  10. OMEPRAZOLE. [Concomitant]
     Active Substance: OMEPRAZOLE
  11. CIPROFIBRATE [Concomitant]
     Active Substance: CIPROFIBRATE
     Route: 065

REACTIONS (3)
  - Cardiac failure [Unknown]
  - Tuberculosis [Unknown]
  - Psoriasis [Not Recovered/Not Resolved]

NARRATIVE: CASE EVENT DATE: 2020
